FAERS Safety Report 16797404 (Version 2)
Quarter: 2019Q4

REPORT INFORMATION
  Report Type: Spontaneous
  Country: US (occurrence: US)
  Receive Date: 20190912
  Receipt Date: 20191011
  Transmission Date: 20200122
  Serious: No
  Sender: FDA-Public Use
  Company Number: US-ASTRAZENECA-2019SF19133

PATIENT
  Age: 71 Year
  Sex: Female
  Weight: 81.6 kg

DRUGS (1)
  1. SYMBICORT [Suspect]
     Active Substance: BUDESONIDE\FORMOTEROL FUMARATE DIHYDRATE
     Indication: ASTHMA
     Dosage: 160/4.5MCG INHALER 2 INHALATIONS,TWO TIME A DAY
     Route: 055
     Dates: start: 2012

REACTIONS (6)
  - Vomiting [Recovered/Resolved with Sequelae]
  - Intentional device misuse [Not Recovered/Not Resolved]
  - Product dose omission [Not Recovered/Not Resolved]
  - Asthma [Not Recovered/Not Resolved]
  - Cough [Recovered/Resolved with Sequelae]
  - Device failure [Unknown]

NARRATIVE: CASE EVENT DATE: 201902
